FAERS Safety Report 7078183-7 (Version None)
Quarter: 2010Q4

REPORT INFORMATION
  Report Type: 
  Country: None (occurrence: None)
  Receive Date: 20101102
  Receipt Date: 20101021
  Transmission Date: 20110411
  Serious: Yes (Hospitalization)
  Sender: FDA-Public Use
  Company Number: US-CELGENEUS-163-21880-10102250

PATIENT
  Sex: Male

DRUGS (1)
  1. REVLIMID [Suspect]
     Route: 048
     Dates: start: 20100905, end: 20101007

REACTIONS (4)
  - CONVULSION [None]
  - MALIGNANT NEOPLASM PROGRESSION [None]
  - MYCOSIS FUNGOIDES [None]
  - PETIT MAL EPILEPSY [None]
